FAERS Safety Report 4341546-4 (Version None)
Quarter: 2004Q2

REPORT INFORMATION
  Report Type: 
  Country: None (occurrence: None)
  Receive Date: 20040419
  Receipt Date: 20040419
  Transmission Date: 20050107
  Serious: Yes (Disabling)
  Sender: FDA-Public Use
  Company Number: None

PATIENT
  Age: 39 Year
  Sex: Female
  Weight: 64.4108 kg

DRUGS (5)
  1. CARTIA XT [Suspect]
     Indication: ANGINA PECTORIS
     Dosage: 300 MG DAILY ORAL
     Route: 048
     Dates: start: 20030710, end: 20040416
  2. ORTHO EVRA [Suspect]
     Indication: ENDOMETRIOSIS
     Dosage: 150MCG/30 MCG WEEKLY TRANSDERMAL
     Route: 062
     Dates: start: 20030817, end: 20030906
  3. ALLEGRA [Concomitant]
  4. MULTIVITAMIN [Concomitant]
  5. ALLEGRA [Concomitant]

REACTIONS (5)
  - ANGINA PECTORIS [None]
  - CONDITION AGGRAVATED [None]
  - EXERCISE TOLERANCE DECREASED [None]
  - MIGRAINE [None]
  - VENTRICULAR EXTRASYSTOLES [None]
